FAERS Safety Report 5830057-2 (Version None)
Quarter: 2008Q3

REPORT INFORMATION
  Report Type: 
  Country: None (occurrence: None)
  Receive Date: 20080801
  Receipt Date: 20080723
  Transmission Date: 20090109
  Serious: Yes (Hospitalization, Other)
  Sender: FDA-Public Use
  Company Number: US-AVENTIS-200812195US

PATIENT
  Sex: Female

DRUGS (6)
  1. KETEK [Suspect]
     Dates: start: 20060306, end: 20060301
  2. KETEK [Suspect]
     Dates: start: 20051231, end: 20060101
  3. KETEK [Suspect]
     Indication: BRONCHITIS
     Dates: start: 20060306, end: 20060301
  4. KETEK [Suspect]
     Dates: start: 20051231, end: 20060101
  5. KETEK [Suspect]
     Indication: SINUSITIS
     Dates: start: 20060306, end: 20060301
  6. KETEK [Suspect]
     Dates: start: 20051231, end: 20060101

REACTIONS (36)
  - ABDOMINAL DISCOMFORT [None]
  - ABDOMINAL PAIN UPPER [None]
  - ALANINE AMINOTRANSFERASE INCREASED [None]
  - ANGIOTENSIN CONVERTING ENZYME INCREASED [None]
  - ANTINUCLEAR ANTIBODY POSITIVE [None]
  - ASPARTATE AMINOTRANSFERASE INCREASED [None]
  - ASTHENIA [None]
  - BACK PAIN [None]
  - BLOOD LACTATE DEHYDROGENASE INCREASED [None]
  - BLOOD UREA DECREASED [None]
  - COUGH [None]
  - DIARRHOEA [None]
  - EATING DISORDER [None]
  - EPISTAXIS [None]
  - FATIGUE [None]
  - FEELING ABNORMAL [None]
  - HEADACHE [None]
  - HEPATIC CYST [None]
  - HEPATITIS ACUTE [None]
  - HEPATOTOXICITY [None]
  - HYPOAESTHESIA [None]
  - IMMUNOGLOBULINS INCREASED [None]
  - LYMPHOCYTE COUNT INCREASED [None]
  - MONOCYTE COUNT INCREASED [None]
  - MYALGIA [None]
  - NAUSEA [None]
  - NECK PAIN [None]
  - NIGHT SWEATS [None]
  - PAIN [None]
  - PROCEDURAL PAIN [None]
  - PYREXIA [None]
  - RED BLOOD CELL SEDIMENTATION RATE INCREASED [None]
  - RESPIRATORY DISORDER [None]
  - TENDERNESS [None]
  - UNEVALUABLE EVENT [None]
  - WEIGHT DECREASED [None]
